FAERS Safety Report 6664024-6 (Version None)
Quarter: 2010Q2

REPORT INFORMATION
  Report Type: 
  Country: None (occurrence: None)
  Receive Date: 20100401
  Receipt Date: 20100324
  Transmission Date: 20101027
  Serious: Yes (Other)
  Sender: FDA-Public Use
  Company Number: A0803414B

PATIENT
  Age: 53 Year
  Sex: Male
  Weight: 105.4 kg

DRUGS (8)
  1. ELTROMBOPAG [Suspect]
     Indication: THROMBOCYTOPENIA
     Dosage: 50MG PER DAY
     Route: 048
     Dates: start: 20090330
  2. ELTROMBOPAG [Suspect]
     Dosage: 25MG PER DAY
     Route: 048
     Dates: start: 20090309
  3. PEGASYS [Suspect]
     Dosage: 180MCG WEEKLY
     Route: 058
     Dates: start: 20090330
  4. COPEGUS [Suspect]
     Route: 048
     Dates: start: 20090330
  5. ATIVAN [Concomitant]
     Dosage: 1MG THREE TIMES PER DAY
     Route: 048
  6. THIAMINE [Concomitant]
     Indication: SUPPLEMENTATION THERAPY
     Dosage: 100MG PER DAY
     Route: 048
  7. FOLIC ACID [Concomitant]
     Indication: SUPPLEMENTATION THERAPY
     Dosage: 1MG PER DAY
     Route: 048
  8. MULTI-VITAMIN [Concomitant]
     Indication: SUPPLEMENTATION THERAPY
     Dosage: 1TAB PER DAY
     Route: 048

REACTIONS (1)
  - NON-CARDIAC CHEST PAIN [None]
